FAERS Safety Report 9725957 (Version 1)
Quarter: 2013Q4

REPORT INFORMATION
  Report Type: Spontaneous
  Country: FR (occurrence: FR)
  Receive Date: 20131203
  Receipt Date: 20131203
  Transmission Date: 20140711
  Serious: Yes (Other)
  Sender: FDA-Public Use
  Company Number: FR-UCBSA-104970

PATIENT
  Age: 7 Year
  Sex: Male
  Weight: 37 kg

DRUGS (3)
  1. QUASYM LP [Suspect]
     Indication: ATTENTION DEFICIT/HYPERACTIVITY DISORDER
     Route: 048
     Dates: start: 20131116, end: 20131118
  2. TEGRETOL [Concomitant]
  3. LAMICTAL [Concomitant]

REACTIONS (2)
  - Convulsion [Recovered/Resolved]
  - Agitation [Unknown]
